FAERS Safety Report 8984435 (Version 1)
Quarter: 2012Q4

REPORT INFORMATION
  Report Type: Spontaneous
  Country: JP (occurrence: None)
  Receive Date: 20121213
  Receipt Date: 20121213
  Transmission Date: 20130627
  Serious: Yes (Hospitalization)
  Sender: FDA-Public Use
  Company Number: TCI2012A06932

PATIENT
  Age: 65 Year
  Sex: Male

DRUGS (6)
  1. ACTOS (PIOGLITAZONE HYDROCHLORIDE) [Suspect]
     Indication: TYPE 2 DIABETES MELLITUS
     Route: 048
     Dates: start: 20090606
  2. ACTOS (PIOGLITAZONE HYDROCHLORIDE) [Suspect]
     Indication: TYPE 2 DIABETES MELLITUS
     Route: 048
  3. CALCIUM CHANNEL BLOCKERS [Concomitant]
  4. ANGIOTENSIN II ANTAGONISTS [Concomitant]
  5. FIBRATES [Concomitant]
  6. ANTITHROMBOTIC AGENTS [Concomitant]

REACTIONS (2)
  - Angina pectoris [None]
  - Blood uric acid increased [None]
